FAERS Safety Report 11115478 (Version 1)
Quarter: 2015Q2

REPORT INFORMATION
  Report Type: Spontaneous
  Country: US (occurrence: None)
  Receive Date: 20150504
  Receipt Date: 20150504
  Transmission Date: 20150821
  Serious: Yes (Hospitalization)
  Sender: FDA-Public Use
  Company Number: 1460081

PATIENT
  Sex: Female

DRUGS (4)
  1. OXALIPLATIN (OXALIPLATIN) [Concomitant]
     Active Substance: OXALIPLATIN
  2. AVASTIN [Suspect]
     Active Substance: BEVACIZUMAB
     Indication: COLORECTAL CANCER
  3. FOLINIC ACID [Concomitant]
     Active Substance: LEUCOVORIN
  4. FLUOROURACIL. [Concomitant]
     Active Substance: FLUOROURACIL

REACTIONS (1)
  - Female genital tract fistula [None]
